FAERS Safety Report 6051983-8 (Version None)
Quarter: 2009Q1

REPORT INFORMATION
  Report Type: 
  Country: None (occurrence: None)
  Receive Date: 20090121
  Receipt Date: 20090121
  Transmission Date: 20090719
  Serious: Yes (Hospitalization, Other)
  Sender: FDA-Public Use
  Company Number: None

PATIENT
  Age: 11 Year
  Sex: Male
  Weight: 49.4421 kg

DRUGS (1)
  1. DILAUDID [Suspect]
     Indication: TOOTH EXTRACTION
     Dosage: IV
     Route: 042
     Dates: start: 20081212

REACTIONS (2)
  - CONDITION AGGRAVATED [None]
  - CONVULSION [None]
